FAERS Safety Report 17916734 (Version 2)
Quarter: 2020Q2

REPORT INFORMATION
  Report Type: Report from Study
  Country: CA (occurrence: CA)
  Receive Date: 20200619
  Receipt Date: 20200619
  Transmission Date: 20200714
  Serious: Yes (Hospitalization, Other)
  Sender: FDA-Public Use
  Company Number: CA-ACCORD-185876

PATIENT
  Age: 55 Year
  Sex: Male
  Weight: 100 kg

DRUGS (7)
  1. SANDOSTATIN [Suspect]
     Active Substance: OCTREOTIDE ACETATE
     Indication: CARCINOID TUMOUR
     Dosage: NOT SPECIFIED
     Route: 030
  2. ASA [Concomitant]
     Active Substance: ASPIRIN
     Dosage: NOT SPECIFIED
     Route: 048
  3. ROSUVASTATIN. [Concomitant]
     Active Substance: ROSUVASTATIN
     Route: 065
  4. AMLODIPINE [Suspect]
     Active Substance: AMLODIPINE BESYLATE
     Indication: BLOOD PRESSURE ABNORMAL
     Route: 065
  5. INSULIN [Concomitant]
     Active Substance: INSULIN NOS
     Route: 048
  6. ALTACE [Concomitant]
     Active Substance: RAMIPRIL
  7. LANTUS [Concomitant]
     Active Substance: INSULIN GLARGINE
     Route: 058

REACTIONS (27)
  - Chills [Recovered/Resolved]
  - Device occlusion [Unknown]
  - Orthostatic hypotension [Recovered/Resolved]
  - Pain [Recovered/Resolved]
  - Blood pressure diastolic decreased [Recovered/Resolved]
  - Blood pressure fluctuation [Recovered/Resolved]
  - Body temperature decreased [Recovered/Resolved]
  - Yellow skin [Recovered/Resolved]
  - Hepatic neoplasm [Recovered/Resolved]
  - Incorrect dose administered [Unknown]
  - Jaundice [Recovered/Resolved]
  - Blood pressure systolic increased [Recovered/Resolved]
  - Bronchitis [Recovered/Resolved]
  - Discomfort [Recovered/Resolved]
  - Nausea [Recovered/Resolved]
  - Weight decreased [Recovered/Resolved]
  - Needle issue [Unknown]
  - Post procedural complication [Recovered/Resolved]
  - Bile duct obstruction [Recovered/Resolved]
  - Decreased appetite [Recovered/Resolved]
  - Heart rate decreased [Recovered/Resolved]
  - Malaise [Recovered/Resolved]
  - Ocular icterus [Recovered/Resolved]
  - Blood glucose decreased [Recovered/Resolved]
  - Blood pressure increased [Recovered/Resolved]
  - Diabetes mellitus [Recovered/Resolved]
  - Tremor [Recovered/Resolved]
